FAERS Safety Report 13466217 (Version 1)
Quarter: 2017Q2

REPORT INFORMATION
  Report Type: Spontaneous
  Country: US (occurrence: US)
  Receive Date: 20170420
  Receipt Date: 20170420
  Transmission Date: 20170830
  Serious: Yes (Hospitalization)
  Sender: FDA-Public Use
  Company Number: None

PATIENT
  Age: 62 Year
  Sex: Female

DRUGS (1)
  1. TALTZ [Suspect]
     Active Substance: IXEKIZUMAB
     Indication: MYOCARDITIS
     Dosage: 80MG 160MG WEEK 0 AND 80MG WEEK 2 SUBQ
     Route: 058
     Dates: start: 20170222, end: 20170323

REACTIONS (1)
  - Epistaxis [None]

NARRATIVE: CASE EVENT DATE: 20170223
